FAERS Safety Report 18454393 (Version 1)
Quarter: 2020Q4

REPORT INFORMATION
  Report Type: Report from Study
  Country: CL (occurrence: CL)
  Receive Date: 20201102
  Receipt Date: 20201102
  Transmission Date: 20210114
  Serious: Yes (Other)
  Sender: FDA-Public Use
  Company Number: CL-JNJFOC-20201041910

PATIENT
  Age: 34 Year
  Sex: Female

DRUGS (1)
  1. SIMPONI [Suspect]
     Active Substance: GOLIMUMAB
     Indication: RHEUMATOID ARTHRITIS
     Route: 058
     Dates: start: 20200217

REACTIONS (3)
  - Rheumatoid arthritis [Recovered/Resolved]
  - Inappropriate schedule of product administration [Unknown]
  - Epistaxis [Unknown]

NARRATIVE: CASE EVENT DATE: 2020
